FAERS Safety Report 8816068 (Version 3)
Quarter: 2013Q1

REPORT INFORMATION
  Report Type: Spontaneous
  Country: US (occurrence: US)
  Receive Date: 20120928
  Receipt Date: 20130204
  Transmission Date: 20140127
  Serious: Yes (Other)
  Sender: FDA-Public Use
  Company Number: US-PFIZER INC-2012239340

PATIENT
  Age: 43 Year
  Sex: Female
  Weight: 54.42 kg

DRUGS (2)
  1. LYRICA [Suspect]
     Indication: PAIN IN EXTREMITY
     Dosage: 50 MG, 1X/DAY
     Route: 048
  2. LYRICA [Suspect]
     Indication: MUSCLE SPASMS
     Dosage: 75 MG

REACTIONS (3)
  - Uterine disorder [Unknown]
  - Blood calcium decreased [Unknown]
  - Drug ineffective [Not Recovered/Not Resolved]
